FAERS Safety Report 13754602 (Version 2)
Quarter: 2017Q3

REPORT INFORMATION
  Report Type: Spontaneous
  Country: US (occurrence: US)
  Receive Date: 20170714
  Receipt Date: 20170728
  Transmission Date: 20171127
  Serious: Yes (Life-Threatening, Hospitalization, Other)
  Sender: FDA-Public Use
  Company Number: US-ACCORD-053436

PATIENT
  Age: 41 Year
  Sex: Male

DRUGS (1)
  1. AMITRIPTYLINE [Suspect]
     Active Substance: AMITRIPTYLINE

REACTIONS (7)
  - Ventricular arrhythmia [Recovered/Resolved]
  - Respiratory failure [Unknown]
  - Diabetic ketoacidosis [Unknown]
  - Bundle branch block left [Recovered/Resolved]
  - Electrocardiogram QT prolonged [Recovered/Resolved]
  - Suicide attempt [Unknown]
  - Overdose [Unknown]
